FAERS Safety Report 9998300 (Version 2)
Quarter: 2014Q1

REPORT INFORMATION
  Report Type: Spontaneous
  Country: SE (occurrence: SE)
  Receive Date: 20140312
  Receipt Date: 20140317
  Transmission Date: 20141002
  Serious: Yes (Hospitalization)
  Sender: FDA-Public Use
  Company Number: SE-ROCHE-1362635

PATIENT
  Age: 41 Year
  Sex: Male

DRUGS (1)
  1. MABTHERA [Suspect]
     Indication: GRANULOMATOSIS WITH POLYANGIITIS
     Dosage: 4 CYCLES
     Route: 042
     Dates: start: 20120405

REACTIONS (2)
  - Encephalitis [Unknown]
  - Pyrexia [Unknown]
